FAERS Safety Report 8957752 (Version 1)
Quarter: 2012Q4

REPORT INFORMATION
  Report Type: 
  Country: US (occurrence: US)
  Receive Date: 20121210
  Receipt Date: 20121210
  Transmission Date: 20130627
  Serious: Yes (Hospitalization)
  Sender: FDA-Public Use
  Company Number: US-PFIZER INC-2012302335

PATIENT
  Sex: Male

DRUGS (3)
  1. TEMSIROLIMUS [Suspect]
     Indication: SQUAMOUS CELL CARCINOMA
     Dosage: UNK
     Dates: start: 20120112, end: 20121102
  2. CARBOPLATIN [Suspect]
     Dosage: UNK
     Dates: start: 20120112, end: 20121102
  3. TAXOL [Suspect]
     Dosage: UNK
     Dates: start: 20120112, end: 20121102

REACTIONS (4)
  - Pyrexia [Recovered/Resolved]
  - Cough [Recovered/Resolved]
  - Oesophagitis [Recovered/Resolved]
  - Dehydration [Recovered/Resolved]
